FAERS Safety Report 24064713 (Version 1)
Quarter: 2024Q3

REPORT INFORMATION
  Report Type: Spontaneous
  Country: ZA (occurrence: ZA)
  Receive Date: 20240709
  Receipt Date: 20240709
  Transmission Date: 20241016
  Serious: Yes (Other)
  Sender: BAYER
  Company Number: ZA-BAYER-2024A097024

PATIENT
  Age: 50 Year
  Sex: Female

DRUGS (3)
  1. DIENOGEST\ESTRADIOL VALERATE [Suspect]
     Active Substance: DIENOGEST\ESTRADIOL VALERATE
     Indication: Contraception
     Dosage: TAKE ONE  TABLET  ONCE DAILY
     Route: 048
  2. ESCITALOPRAM [Concomitant]
     Active Substance: ESCITALOPRAM OXALATE
     Indication: Depression
     Dosage: TAKE  ONE TABLET  ONCE DAILY
     Route: 048
  3. ZOLPIDEM TARTRATE [Concomitant]
     Active Substance: ZOLPIDEM TARTRATE
     Indication: Insomnia
     Dosage: TAKE  ONE TABLET  AT NIGHT
     Route: 048

REACTIONS (2)
  - Lower respiratory tract infection [None]
  - Cough [None]
